FAERS Safety Report 5351844-3 (Version None)
Quarter: 2007Q2

REPORT INFORMATION
  Report Type: 
  Country: None (occurrence: None)
  Receive Date: 20070521
  Receipt Date: 20070306
  Transmission Date: 20071010
  Serious: Yes (Disabling)
  Sender: FDA-Public Use
  Company Number: WAES 0703USA00934

PATIENT
  Age: 51 Year
  Sex: Male
  Weight: 73.9363 kg

DRUGS (1)
  1. JANUVIA [Suspect]
     Indication: DIABETES MELLITUS
     Dosage: 100 MG/DAILY/PO
     Route: 048
     Dates: start: 20070220, end: 20070223

REACTIONS (1)
  - NASOPHARYNGITIS [None]
